FAERS Safety Report 19918387 (Version 1)
Quarter: 2021Q4

REPORT INFORMATION
  Report Type: Spontaneous
  Country: US (occurrence: US)
  Receive Date: 20211004
  Receipt Date: 20211004
  Transmission Date: 20220303
  Serious: No
  Sender: FDA-Public Use
  Company Number: US-AMNEAL PHARMACEUTICALS-2021-AMRX-03100

PATIENT
  Age: 26 Year
  Sex: Female

DRUGS (3)
  1. RITONAVIR [Suspect]
     Active Substance: RITONAVIR
     Indication: HIV infection
     Dosage: 1 TABLETS, DAILY
     Route: 048
     Dates: start: 20200706, end: 20200911
  2. ATAZANAVIR [Suspect]
     Active Substance: ATAZANAVIR
     Indication: HIV infection
     Dosage: 300 MILLIGRAM, 1 /DAY
     Route: 048
     Dates: start: 20200706, end: 20200911
  3. TRIUMEQ [Suspect]
     Active Substance: ABACAVIR SULFATE\DOLUTEGRAVIR SODIUM\LAMIVUDINE
     Indication: HIV infection
     Dosage: 1 DOSAGE FORM, DAILY
     Route: 048
     Dates: start: 20200512

REACTIONS (2)
  - Polyhydramnios [Unknown]
  - Maternal exposure during pregnancy [Unknown]

NARRATIVE: CASE EVENT DATE: 20200101
